FAERS Safety Report 9664137 (Version 7)
Quarter: 2014Q2

REPORT INFORMATION
  Report Type: Report from Study
  Country: DE (occurrence: DE)
  Receive Date: 20131101
  Receipt Date: 20140416
  Transmission Date: 20141212
  Serious: Yes (Hospitalization)
  Sender: FDA-Public Use
  Company Number: DE-EISAI INC-E7389-04364-CLI-DE

PATIENT
  Age: 74 Year
  Sex: Male

DRUGS (23)
  1. ERIBULIN [Suspect]
     Indication: BLADDER CANCER
     Dosage: 1 MG/M2
     Route: 041
     Dates: start: 20130912, end: 201310
  2. ERIBULIN [Suspect]
     Dosage: 2.06 MG
     Route: 041
     Dates: end: 20140109
  3. CISPLATIN [Concomitant]
     Indication: BLADDER CANCER
     Dosage: 70 MG/M2
     Route: 041
     Dates: start: 20130912, end: 201310
  4. CISPLATIN [Concomitant]
     Dosage: 70 MG/M2
     Route: 041
     Dates: end: 20140102
  5. GEMCITABINE [Concomitant]
     Indication: BLADDER CANCER
     Dosage: 1000 MG/M2
     Route: 041
     Dates: start: 20130912, end: 201310
  6. GEMCITABINE [Concomitant]
     Dosage: 2060 MG
     Route: 041
     Dates: end: 20140109
  7. FENTANYL [Concomitant]
     Indication: PAIN
     Route: 062
     Dates: start: 20130910
  8. IBUPROFEN [Concomitant]
     Indication: PAIN
     Route: 048
     Dates: start: 20130829
  9. NOVALGIN [Concomitant]
     Indication: PAIN
     Dosage: UNKNOWN
     Route: 048
     Dates: start: 20130829
  10. TRAMAL [Concomitant]
     Indication: BACK PAIN
     Dosage: UNKNOWN
     Route: 048
     Dates: start: 20130901
  11. OMEPRAZOLE [Concomitant]
     Indication: GASTROOESOPHAGEAL REFLUX DISEASE
     Dosage: UNKNOWN
     Route: 048
     Dates: start: 201207
  12. MOVICOL [Concomitant]
     Indication: CONSTIPATION
     Dosage: UNKNOWN
     Route: 048
     Dates: start: 20130920, end: 20130922
  13. EMEND [Concomitant]
     Indication: NAUSEA
     Route: 048
     Dates: start: 20131122
  14. FORTECORTIN [Concomitant]
     Indication: NAUSEA
     Route: 048
     Dates: start: 20131122
  15. ZOFRAN [Concomitant]
     Indication: NAUSEA
     Route: 048
     Dates: start: 20131122
  16. PASPERTIN [Concomitant]
     Indication: NAUSEA
     Route: 048
     Dates: start: 20131122
  17. XARELTO [Concomitant]
     Indication: PROPHYLAXIS
     Route: 048
     Dates: start: 20131206
  18. NYSTATIN SUSPENSION [Concomitant]
     Indication: STOMATITIS
     Route: 048
     Dates: start: 20131226
  19. BEPANTHEN SOLUTION [Concomitant]
     Indication: STOMATITIS
     Route: 048
     Dates: start: 20131226
  20. FUCICORT SALVE [Concomitant]
     Indication: RASH
     Route: 062
     Dates: start: 20140113
  21. CEFUROXIME [Concomitant]
     Indication: URINARY TRACT INFECTION
     Route: 041
     Dates: start: 20140213, end: 20140214
  22. ELOBACT [Concomitant]
     Indication: URINARY TRACT INFECTION
     Route: 048
     Dates: start: 20140214
  23. METAMIZOL [Concomitant]
     Indication: PAIN
     Route: 048
     Dates: start: 20130829

REACTIONS (1)
  - Pulmonary embolism [Recovered/Resolved]
